FAERS Safety Report 9768958 (Version 2)
Quarter: 2014Q1

REPORT INFORMATION
  Report Type: Spontaneous
  Country: US (occurrence: US)
  Receive Date: 20131218
  Receipt Date: 20140304
  Transmission Date: 20141002
  Serious: No
  Sender: FDA-Public Use
  Company Number: US-009507513-1311USA011856

PATIENT
  Age: 49 Year
  Sex: Male

DRUGS (10)
  1. REBETOL [Suspect]
     Indication: HEPATITIS C
     Dosage: DOSE: 1 A.M. AND AND P.M, FREQUENCY: B.I.D. (TWICE A DAY)
     Route: 048
     Dates: start: 20131125
  2. PEGINTRON [Suspect]
     Indication: HEPATITIS C
     Dosage: DOSE: 0.5 CC, FREQUENCY: ONCE A WEEK
     Route: 058
     Dates: start: 20131125
  3. VICTRELIS [Suspect]
     Indication: HEPATITIS C
     Dosage: DOSE: 12 CAPSULES PER DAY, FREQUENCY: Q8H (EVERY EIGHT HOURS)
     Route: 048
     Dates: start: 20131223
  4. NEXIUM [Concomitant]
     Dosage: 1 DOSE, QD
  5. OMEPRAZOLE [Concomitant]
     Dosage: 1 DOSE, QD
     Route: 048
  6. BUPROPION HYDROCHLORIDE [Concomitant]
     Dosage: 1 DOSE, QD
     Route: 048
  7. CARBAMAZEPINE [Concomitant]
     Dosage: 1 DOSE, QD
     Route: 048
  8. CLONAZEPAM [Concomitant]
     Indication: NERVOUSNESS
     Dosage: 1 DOSE, PRN
  9. FOLIC ACID [Concomitant]
     Dosage: 1 DOSE, QD
     Route: 048
  10. TYLENOL [Concomitant]
     Indication: PAIN
     Dosage: 1 TO 2, PRN

REACTIONS (4)
  - Feeling hot [Unknown]
  - Pyrexia [Unknown]
  - Chills [Unknown]
  - Back pain [Unknown]
